FAERS Safety Report 14343776 (Version 1)
Quarter: 2018Q1

REPORT INFORMATION
  Report Type: Spontaneous
  Country: CZ (occurrence: CZ)
  Receive Date: 20180102
  Receipt Date: 20180102
  Transmission Date: 20180509
  Serious: Yes (Hospitalization, Other)
  Sender: FDA-Public Use
  Company Number: CZ-SHIRE-CZ201735045

PATIENT

DRUGS (8)
  1. ATROVENT [Concomitant]
     Active Substance: IPRATROPIUM BROMIDE
     Indication: PRODUCT USED FOR UNKNOWN INDICATION
     Dosage: THE DOSAGE: 2-0-2.
  2. BERODUAL [Concomitant]
     Active Substance: FENOTEROL HYDROBROMIDE\IPRATROPIUM BROMIDE
     Indication: PRODUCT USED FOR UNKNOWN INDICATION
     Dosage: IT WAS CHANGED FOR ATROVENT BEFORE 1 MONTHS.
  3. APO-ALLOPURINOL [Concomitant]
     Active Substance: ALLOPURINOL
     Indication: PRODUCT USED FOR UNKNOWN INDICATION
  4. ERDOMED [Concomitant]
     Active Substance: ERDOSTEINE
     Indication: PRODUCT USED FOR UNKNOWN INDICATION
  5. BRETARIS GENUAIR [Concomitant]
     Active Substance: ACLIDINIUM BROMIDE
     Indication: PRODUCT USED FOR UNKNOWN INDICATION
     Dosage: THE DOSAGE: 1-0-1.
  6. SUBCUVIA [Suspect]
     Active Substance: HUMAN IMMUNOGLOBULIN G
     Indication: PNEUMONIA
     Dosage: 160 G, 3X A WEEK
     Route: 065
     Dates: start: 20170930
  7. CLOPIDOGREL [Concomitant]
     Active Substance: CLOPIDOGREL BISULFATE
     Indication: PRODUCT USED FOR UNKNOWN INDICATION
  8. COMBAIR [Concomitant]
     Indication: PRODUCT USED FOR UNKNOWN INDICATION
     Dosage: THE DOSAGE 2-2-2.

REACTIONS (9)
  - Dyspnoea [Unknown]
  - Abdominal pain upper [Unknown]
  - Angina pectoris [Unknown]
  - Abdominal discomfort [Unknown]
  - Palpitations [Unknown]
  - Myalgia [Unknown]
  - Abdominal pain [Unknown]
  - Paraesthesia [Unknown]
  - Constipation [Unknown]
